FAERS Safety Report 7701493-4 (Version None)
Quarter: 2011Q3

REPORT INFORMATION
  Report Type: 
  Country: None (occurrence: None)
  Receive Date: 20110822
  Receipt Date: 20110812
  Transmission Date: 20111222
  Serious: Yes (Hospitalization, Other)
  Sender: FDA-Public Use
  Company Number: US-MERCK-1107USA02530

PATIENT
  Age: 62 Year
  Sex: Female

DRUGS (4)
  1. [THERAPY UNSPECIFIED] [Concomitant]
     Route: 065
     Dates: start: 19910101
  2. FOSAMAX [Suspect]
     Indication: OSTEOPOROSIS
     Route: 048
     Dates: start: 19980101
  3. CALCIUM (UNSPECIFIED) [Concomitant]
     Route: 065
     Dates: start: 19910101
  4. VITAMINS (UNSPECIFIED) [Concomitant]
     Route: 065
     Dates: start: 19910101

REACTIONS (9)
  - ORAL DISORDER [None]
  - DENTAL CARIES [None]
  - BREAST CANCER [None]
  - THYROID DISORDER [None]
  - FALL [None]
  - TOOTH DISORDER [None]
  - FEMUR FRACTURE [None]
  - ANKLE FRACTURE [None]
  - IMPAIRED HEALING [None]
